FAERS Safety Report 20946687 (Version 1)
Quarter: 2022Q2

REPORT INFORMATION
  Report Type: Spontaneous
  Country: PL (occurrence: PL)
  Receive Date: 20220610
  Receipt Date: 20220610
  Transmission Date: 20220721
  Serious: Yes (Other)
  Sender: FDA-Public Use
  Company Number: PL-AMGEN-POLSP2022091099

PATIENT
  Age: 37 Year
  Sex: Male

DRUGS (5)
  1. OXALIPLATIN [Suspect]
     Active Substance: OXALIPLATIN
     Indication: Colorectal cancer metastatic
     Dosage: UNK
     Route: 065
     Dates: start: 202007, end: 202105
  2. VECTIBIX [Suspect]
     Active Substance: PANITUMUMAB
     Indication: Colorectal cancer metastatic
     Dosage: UNK, CYCLICAL (20 TREATMENT CYCLES)
     Route: 065
     Dates: start: 202007, end: 202105
  3. IRINOTECAN [Suspect]
     Active Substance: IRINOTECAN
     Indication: Colorectal cancer metastatic
     Dosage: UNK
     Route: 065
     Dates: end: 202202
  4. FLUOROURACIL [Suspect]
     Active Substance: FLUOROURACIL
     Indication: Colorectal cancer metastatic
     Dosage: UNK
     Route: 065
     Dates: start: 202007, end: 202202
  5. LEUCOVORIN [Suspect]
     Active Substance: LEUCOVORIN
     Indication: Colorectal cancer stage IV
     Dosage: UNK
     Route: 065
     Dates: start: 202007, end: 202202

REACTIONS (7)
  - Gastrointestinal necrosis [Unknown]
  - Volvulus of small bowel [Unknown]
  - Abdominal adhesions [Unknown]
  - Metastases to lung [Unknown]
  - Device related infection [Unknown]
  - Skin toxicity [Unknown]
  - Metastases to liver [Unknown]

NARRATIVE: CASE EVENT DATE: 20210101
